FAERS Safety Report 12404298 (Version 1)
Quarter: 2016Q2

REPORT INFORMATION
  Report Type: Spontaneous
  Country: FI (occurrence: FI)
  Receive Date: 20160525
  Receipt Date: 20160525
  Transmission Date: 20160815
  Serious: Yes (Life-Threatening, Other)
  Sender: FDA-Public Use
  Company Number: FI-TEVA-660637ISR

PATIENT
  Age: 45 Year
  Sex: Female

DRUGS (8)
  1. VENTOLINE [Concomitant]
     Active Substance: ALBUTEROL
     Dosage: WHEN NEEDED
  2. SERETIDE [Concomitant]
     Active Substance: FLUTICASONE PROPIONATE\SALMETEROL XINAFOATE
     Dosage: 1 BREATH 2 TIMES PER DAY
  3. ORLOC 5 MG [Concomitant]
     Active Substance: BISOPROLOL FUMARATE
     Indication: ARRHYTHMIA
  4. SPIRIVA 2,5 MICROGRAM [Concomitant]
     Dosage: 5 MICROGRAM DAILY; 2,5 MICROG. 2 TIMES PER DAY
  5. HISTEC 10 MG [Concomitant]
     Dosage: 20 MILLIGRAM DAILY;
  6. AMOXIN COMP 875/125 MG [Suspect]
     Active Substance: AMOXICILLIN\CLAVULANIC ACID
     Indication: SINUSITIS
     Route: 048
     Dates: start: 20160328, end: 20160404
  7. ORLOC 5 MG [Concomitant]
     Active Substance: BISOPROLOL FUMARATE
     Indication: BLOOD PRESSURE ABNORMAL
     Dosage: 2.5 MILLIGRAM DAILY;
     Route: 048
  8. LORATADIN 10 MG [Concomitant]
     Route: 048

REACTIONS (8)
  - Drug-induced liver injury [Not Recovered/Not Resolved]
  - Hepatomegaly [Not Recovered/Not Resolved]
  - Nausea [Unknown]
  - Scleral discolouration [Not Recovered/Not Resolved]
  - Pruritus [Unknown]
  - Jaundice [Not Recovered/Not Resolved]
  - Malaise [Unknown]
  - Abdominal pain upper [Unknown]

NARRATIVE: CASE EVENT DATE: 201604
